FAERS Safety Report 9046386 (Version 1)
Quarter: 2013Q1

REPORT INFORMATION
  Report Type: Spontaneous
  Country: US (occurrence: US)
  Receive Date: 20130201
  Receipt Date: 20130201
  Transmission Date: 20140127
  Serious: Yes (Hospitalization)
  Sender: FDA-Public Use
  Company Number: US-BAYER-2013-012654

PATIENT
  Age: 41 Year
  Sex: Female

DRUGS (7)
  1. YASMIN [Suspect]
  2. DOXYCYCLINE [Concomitant]
     Dosage: 100 MG, UNK
     Dates: start: 20060711
  3. NAPROXEN [Concomitant]
     Dosage: 500 MG, UNK
     Dates: start: 20060721
  4. NAPROXEN [Concomitant]
     Dosage: 500 MG, UNK
     Dates: start: 20061016
  5. HYDROCODONE W/ACETAMINOPHEN [Concomitant]
     Dosage: 5/500 MG
     Dates: start: 20060721
  6. ULTRAM ER [Concomitant]
     Dosage: 200 MG, UNK
     Dates: start: 20060724
  7. ALBUTEROL [Concomitant]

REACTIONS (2)
  - Deep vein thrombosis [None]
  - Pulmonary embolism [None]
